FAERS Safety Report 6334759-3 (Version None)
Quarter: 2009Q3

REPORT INFORMATION
  Report Type: 
  Country: None (occurrence: None)
  Receive Date: 20090831
  Receipt Date: 20090820
  Transmission Date: 20100115
  Serious: Yes (Other)
  Sender: FDA-Public Use
  Company Number: PHEH2009US09059

PATIENT
  Sex: Female
  Weight: 68.481 kg

DRUGS (9)
  1. MIACALCIN [Suspect]
     Indication: OSTEOPOROSIS POSTMENOPAUSAL
     Dosage: 20 MG, UNK
     Dates: start: 20020101, end: 20040101
  2. PRAVACHOL [Concomitant]
     Indication: BLOOD CHOLESTEROL
     Dosage: 20 UNK, UNK
     Route: 048
  3. PRILOSEC [Concomitant]
  4. CITRACAL [Concomitant]
  5. VITAMIN D [Concomitant]
     Dosage: 50000 U, UNK
  6. FLAXSEED OIL [Concomitant]
  7. FERROUS SULFATE TAB [Concomitant]
     Dosage: 50 MG, UNK
  8. PROZAC [Concomitant]
     Indication: DEPRESSION
     Dosage: UNK
     Dates: start: 20020101
  9. TOPROL-XL [Concomitant]
     Indication: HYPERTENSION
     Dosage: UNK
     Dates: start: 20040101

REACTIONS (2)
  - DRUG INEFFECTIVE [None]
  - HYPERTENSION [None]
